FAERS Safety Report 13260297 (Version 1)
Quarter: 2017Q1

REPORT INFORMATION
  Report Type: Spontaneous
  Country: SE (occurrence: SE)
  Receive Date: 20170222
  Receipt Date: 20170222
  Transmission Date: 20170428
  Serious: Yes (Death)
  Sender: FDA-Public Use
  Company Number: SE-PFIZER INC-2017074968

PATIENT
  Age: 68 Year
  Sex: Female

DRUGS (11)
  1. VANCOMYCIN HCL [Suspect]
     Active Substance: VANCOMYCIN HYDROCHLORIDE
     Dosage: 2.5 MG, UNK
  2. LINEZOLID. [Concomitant]
     Active Substance: LINEZOLID
     Indication: ENTEROCOCCAL INFECTION
     Dosage: UNK
  3. PIPERACILLIN AND TAZOBACTAM [Concomitant]
     Active Substance: PIPERACILLIN SODIUM\TAZOBACTAM SODIUM
     Indication: ACUTE MYELOID LEUKAEMIA
     Dosage: UNK
  4. CLINDAMYCIN HCL [Concomitant]
     Active Substance: CLINDAMYCIN HYDROCHLORIDE
     Indication: FEBRILE NEUTROPENIA
  5. VANCOMYCIN HCL [Suspect]
     Active Substance: VANCOMYCIN HYDROCHLORIDE
     Dosage: 1.5 G, 2X/DAY
  6. VANCOMYCIN HCL [Suspect]
     Active Substance: VANCOMYCIN HYDROCHLORIDE
     Dosage: 1 G, 2X/DAY
  7. CIPROFLOXACIN. [Concomitant]
     Active Substance: CIPROFLOXACIN
     Indication: ACUTE MYELOID LEUKAEMIA
     Dosage: UNK
  8. VANCOMYCIN HCL [Suspect]
     Active Substance: VANCOMYCIN HYDROCHLORIDE
     Indication: ACUTE MYELOID LEUKAEMIA
     Dosage: 1 G, TWICE TO THREE TIMES DAILY
  9. MEROPENEM. [Concomitant]
     Active Substance: MEROPENEM
     Indication: ACUTE MYELOID LEUKAEMIA
     Dosage: UNK
  10. METRONIDAZOLE. [Concomitant]
     Active Substance: METRONIDAZOLE
     Indication: ACUTE MYELOID LEUKAEMIA
     Dosage: UNK
  11. CLINDAMYCIN HCL [Concomitant]
     Active Substance: CLINDAMYCIN HYDROCHLORIDE
     Indication: ACUTE MYELOID LEUKAEMIA
     Dosage: UNK

REACTIONS (1)
  - Drug resistance [Fatal]
